FAERS Safety Report 6368402-4 (Version None)
Quarter: 2009Q3

REPORT INFORMATION
  Report Type: 
  Country: None (occurrence: None)
  Receive Date: 20090922
  Receipt Date: 20090911
  Transmission Date: 20100115
  Serious: No
  Sender: FDA-Public Use
  Company Number: US-B.I. PHARMACEUTICALS,INC./RIDGEFIELD-2009-BP-10806BP

PATIENT
  Sex: Female

DRUGS (5)
  1. SPIRIVA [Suspect]
     Indication: CHRONIC OBSTRUCTIVE PULMONARY DISEASE
     Dosage: 18 MCG
     Route: 055
     Dates: start: 20090831
  2. ALPHAGAN [Concomitant]
     Indication: GLAUCOMA
     Dates: start: 20050101
  3. XALATAN [Concomitant]
     Indication: CORNEAL TRANSPLANT
  4. VEXOL [Concomitant]
     Indication: CORNEAL TRANSPLANT
  5. UNSPECIFIED BLOOD PRESSURE MEDICATIONS [Concomitant]

REACTIONS (1)
  - EYE PAIN [None]
